FAERS Safety Report 7438347-7 (Version None)
Quarter: 2011Q2

REPORT INFORMATION
  Report Type: 
  Country: None (occurrence: None)
  Receive Date: 20110426
  Receipt Date: 20110321
  Transmission Date: 20111010
  Serious: Yes (Hospitalization, Other)
  Sender: FDA-Public Use
  Company Number: US-BAYER-2010-002210

PATIENT
  Age: 44 Year
  Sex: Female
  Weight: 58.957 kg

DRUGS (7)
  1. LEVOTHYROXINE SODIUM [Concomitant]
  2. YASMIN [Suspect]
     Indication: PRODUCT USED FOR UNKNOWN INDICATION
  3. COUMADIN [Concomitant]
  4. YAZ [Suspect]
     Indication: PRODUCT USED FOR UNKNOWN INDICATION
  5. LITHIUM [Concomitant]
  6. DITROPAN [Concomitant]
  7. SYNTHROID [Concomitant]

REACTIONS (4)
  - DEEP VEIN THROMBOSIS [None]
  - GALLBLADDER INJURY [None]
  - THROMBOSIS [None]
  - CHOLECYSTITIS CHRONIC [None]
